FAERS Safety Report 8394583 (Version 6)
Quarter: 2013Q2

REPORT INFORMATION
  Report Type: Spontaneous
  Country: JP (occurrence: JP)
  Receive Date: 20120207
  Receipt Date: 20130403
  Transmission Date: 20140414
  Serious: Yes (Hospitalization)
  Sender: FDA-Public Use
  Company Number: JP-GLAXOSMITHKLINE-B0779138A

PATIENT
  Age: 62 Year
  Sex: Male
  Weight: 59 kg

DRUGS (10)
  1. LAMICTAL [Suspect]
     Indication: BIPOLAR DISORDER
     Dosage: 25MG PER DAY
     Route: 048
     Dates: start: 20111227, end: 20120109
  2. LAMICTAL [Suspect]
     Indication: BIPOLAR DISORDER
     Dosage: 50MG PER DAY
     Route: 048
     Dates: start: 20120110, end: 20120122
  3. URALYT [Concomitant]
     Route: 048
  4. BAYASPIRIN [Concomitant]
     Route: 048
  5. PAXIL [Concomitant]
     Route: 048
  6. SILECE [Concomitant]
     Dosage: 2MG PER DAY
     Route: 065
  7. LULLAN [Concomitant]
     Dosage: 8MG PER DAY
     Route: 048
  8. LIMAS [Concomitant]
     Dosage: 200MG THREE TIMES PER DAY
     Route: 048
  9. LENDORMIN [Concomitant]
     Dosage: .25MG PER DAY
     Route: 048
  10. ZYLORIC [Concomitant]
     Route: 048

REACTIONS (11)
  - Stevens-Johnson syndrome [Recovering/Resolving]
  - Erythema multiforme [Unknown]
  - Drug eruption [Recovering/Resolving]
  - Ocular hyperaemia [Unknown]
  - Erythema of eyelid [Unknown]
  - Eye discharge [Unknown]
  - Lip erosion [Unknown]
  - Oral mucosa erosion [Unknown]
  - Scab [Unknown]
  - Papule [Unknown]
  - Erythema [Unknown]
